FAERS Safety Report 8423366-4 (Version None)
Quarter: 2012Q2

REPORT INFORMATION
  Report Type: 
  Country: None (occurrence: None)
  Receive Date: 20120608
  Receipt Date: 20120531
  Transmission Date: 20120825
  Serious: Yes (Other)
  Sender: FDA-Public Use
  Company Number: CA-BAXTER-2012BAX003748

PATIENT
  Age: 64 Year
  Sex: Female
  Weight: 81 kg

DRUGS (18)
  1. ATENOLOL [Concomitant]
     Route: 048
     Dates: start: 20110314
  2. ATORVASTATIN CALCIUM [Concomitant]
     Route: 048
     Dates: start: 20111122
  3. FUROSEMIDE [Concomitant]
     Route: 048
     Dates: start: 20111122
  4. DARBEPOETIN ALFA [Concomitant]
     Route: 058
     Dates: start: 20110411
  5. INSULIN GLARGINE [Concomitant]
     Dosage: 30 UNITS
     Route: 058
     Dates: start: 20111122
  6. INSULIN GLULISINE [Concomitant]
     Dosage: 14 - 16 UNITS
     Route: 058
     Dates: start: 20111122
  7. EXTRANEAL [Suspect]
     Indication: PERITONEAL DIALYSIS
     Route: 033
     Dates: start: 20120418, end: 20120423
  8. AMLODIPINE BESYLATE [Concomitant]
     Route: 048
     Dates: start: 20110314
  9. LISINOPRIL [Concomitant]
     Route: 048
     Dates: start: 20110314
  10. DIANEAL [Suspect]
     Route: 033
     Dates: start: 20120418
  11. MUPIROCIN [Concomitant]
     Dosage: APPLICATION
     Route: 061
     Dates: start: 20120430
  12. DOCUSATE SODIUM [Concomitant]
     Dosage: 1 - 2 TABLETS
     Route: 048
     Dates: start: 20120418
  13. ARANESP [Concomitant]
     Route: 065
  14. EXTRANEAL [Suspect]
  15. REPLAVITE                          /00058902/ [Concomitant]
     Route: 048
     Dates: start: 20111122
  16. DIANEAL [Suspect]
     Route: 033
     Dates: start: 20120418
  17. FERROUS FUMARATE [Concomitant]
     Route: 048
     Dates: start: 20111018
  18. LACTULOSE [Concomitant]
     Dosage: 30 - 60 ML
     Route: 048
     Dates: start: 20110418

REACTIONS (4)
  - RASH PAPULAR [None]
  - PRURITUS [None]
  - DRUG HYPERSENSITIVITY [None]
  - SKIN BURNING SENSATION [None]
